FAERS Safety Report 5706686-3 (Version None)
Quarter: 2008Q2

REPORT INFORMATION
  Report Type: 
  Country: None (occurrence: None)
  Receive Date: 20080415
  Receipt Date: 20080415
  Transmission Date: 20081010
  Serious: Yes (Death, Life-Threatening)
  Sender: FDA-Public Use
  Company Number: None

PATIENT
  Age: 74 Year
  Sex: Female
  Weight: 80 kg

DRUGS (4)
  1. LOVENOX [Suspect]
     Indication: ATRIAL FIBRILLATION
     Dosage: 80MG BID SC
     Route: 058
     Dates: start: 20080318
  2. COUMADIN [Suspect]
     Indication: ATRIAL FIBRILLATION
     Dosage: 5MG DAILY PO
     Route: 048
     Dates: start: 20080318, end: 20080322
  3. ASPIRIN [Suspect]
     Dosage: 81 MG DAILY PO
     Route: 048
  4. OMEGA 3 ACID ESTERS [Suspect]
     Dosage: 4G DAILY PO HOME MED PRIOR TO 3-17 TO 3-22
     Route: 048
     Dates: start: 20080317, end: 20080322

REACTIONS (8)
  - ATRIAL FIBRILLATION [None]
  - CEREBROVASCULAR ACCIDENT [None]
  - HYPOTENSION [None]
  - LETHARGY [None]
  - NERVOUS SYSTEM DISORDER [None]
  - RENAL FAILURE ACUTE [None]
  - SHOCK HAEMORRHAGIC [None]
  - UNRESPONSIVE TO STIMULI [None]
